FAERS Safety Report 16681625 (Version 1)
Quarter: 2019Q3

REPORT INFORMATION
  Report Type: Spontaneous
  Country: US (occurrence: US)
  Receive Date: 20190808
  Receipt Date: 20190808
  Transmission Date: 20191004
  Serious: Yes (Hospitalization, Other)
  Sender: FDA-Public Use
  Company Number: US-ACCORD-150799

PATIENT
  Age: 59 Year
  Sex: Female

DRUGS (2)
  1. TACROLIMUS. [Suspect]
     Active Substance: TACROLIMUS
     Indication: IMMUNOSUPPRESSANT DRUG THERAPY
     Dates: start: 2011
  2. MYCOPHENOLIC ACID. [Suspect]
     Active Substance: MYCOPHENOLIC ACID
     Indication: IMMUNOSUPPRESSANT DRUG THERAPY
     Dates: start: 2011

REACTIONS (8)
  - Mycobacterial infection [Recovering/Resolving]
  - Disseminated tuberculosis [Recovering/Resolving]
  - Osteomyelitis [Recovering/Resolving]
  - Duodenal perforation [Recovering/Resolving]
  - Joint tuberculosis [Recovering/Resolving]
  - Mesenteric abscess [Recovering/Resolving]
  - Tuberculosis gastrointestinal [Recovering/Resolving]
  - Acid fast bacilli infection [Recovering/Resolving]
